FAERS Safety Report 5784266-1 (Version None)
Quarter: 2008Q2

REPORT INFORMATION
  Report Type: 
  Country: None (occurrence: None)
  Receive Date: 20080624
  Receipt Date: 20070430
  Transmission Date: 20081010
  Serious: No
  Sender: FDA-Public Use
  Company Number: US-ASTRAZENECA-2007UW09241

PATIENT
  Sex: Female

DRUGS (3)
  1. PULMICORT-100 [Suspect]
     Indication: SEASONAL ALLERGY
     Dosage: 160/4.5 UG PRN
     Route: 055
     Dates: start: 20020101
  2. ADVAIR DISKUS 100/50 [Concomitant]
  3. RHINOCORT [Concomitant]

REACTIONS (4)
  - COUGH [None]
  - PSEUDOMEMBRANOUS COLITIS [None]
  - PULMONARY FUNCTION TEST DECREASED [None]
  - SINUSITIS [None]
